FAERS Safety Report 11206395 (Version 1)
Quarter: 2015Q2

REPORT INFORMATION
  Report Type: Spontaneous
  Country: US (occurrence: None)
  Receive Date: 20150619
  Receipt Date: 20150619
  Transmission Date: 20150821
  Serious: Yes (Hospitalization)
  Sender: FDA-Public Use
  Company Number: None

PATIENT
  Age: 52 Year
  Sex: Female
  Weight: 120.5 kg

DRUGS (4)
  1. PAXIL [Concomitant]
     Active Substance: PAROXETINE HYDROCHLORIDE
  2. SEROQUEL [Concomitant]
     Active Substance: QUETIAPINE FUMARATE
  3. MORPHINE [Suspect]
     Active Substance: MORPHINE
     Indication: HYSTERECTOMY
     Dosage: 30MG/30ML CONTINUOUS PCA INFUSION
  4. MORPHINE [Suspect]
     Active Substance: MORPHINE
     Indication: PROCEDURAL PAIN
     Dosage: 30MG/30ML CONTINUOUS PCA INFUSION

REACTIONS (4)
  - Drug hypersensitivity [None]
  - Oxygen saturation decreased [None]
  - Sedation [None]
  - Unresponsive to stimuli [None]

NARRATIVE: CASE EVENT DATE: 20150213
